FAERS Safety Report 24151519 (Version 1)
Quarter: 2024Q3

REPORT INFORMATION
  Report Type: Spontaneous
  Country: US (occurrence: US)
  Receive Date: 20240730
  Receipt Date: 20240730
  Transmission Date: 20241017
  Serious: Yes (Disabling, Other)
  Sender: ACCORD
  Company Number: US-Accord-437727

PATIENT
  Age: 67 Year
  Sex: Male

DRUGS (10)
  1. BORTEZOMIB [Suspect]
     Active Substance: BORTEZOMIB
     Indication: Waldenstrom^s macroglobulinaemia
     Dosage: THREE DOSES
  2. DEXAMETHASONE [Concomitant]
     Active Substance: DEXAMETHASONE
     Indication: Waldenstrom^s macroglobulinaemia
  3. RITUXIMAB [Concomitant]
     Active Substance: RITUXIMAB
     Indication: Waldenstrom^s macroglobulinaemia
  4. AMLODIPINE [Concomitant]
     Active Substance: AMLODIPINE BESYLATE
  5. DIGOXIN [Concomitant]
     Active Substance: DIGOXIN
  6. METOPROLOL [Concomitant]
     Active Substance: METOPROLOL
  7. WARFARIN [Concomitant]
     Active Substance: WARFARIN
  8. SIMVASTATIN [Concomitant]
     Active Substance: SIMVASTATIN
  9. TERAZOSIN [Concomitant]
     Active Substance: TERAZOSIN HYDROCHLORIDE
  10. THALIDOMIDE [Concomitant]
     Active Substance: THALIDOMIDE

REACTIONS (5)
  - Deafness neurosensory [Recovering/Resolving]
  - Off label use [Unknown]
  - Deafness bilateral [Recovering/Resolving]
  - Tinnitus [Unknown]
  - Thrombocytopenia [Unknown]
